FAERS Safety Report 4280840-2 (Version None)
Quarter: 2004Q1

REPORT INFORMATION
  Report Type: 
  Country: None (occurrence: None)
  Receive Date: 20040128
  Receipt Date: 20040128
  Transmission Date: 20041129
  Serious: No
  Sender: FDA-Public Use
  Company Number: None

PATIENT
  Sex: Female
  Weight: 65.7716 kg

DRUGS (1)
  1. HYDROCHLOROTHIAZIDE 12.5 MG CAPSULES [Suspect]
     Indication: HYPERTENSION
     Dosage: 12.5 MG 1 DAILY ORAL
     Route: 048

REACTIONS (1)
  - NO ADVERSE EFFECT [None]
